FAERS Safety Report 11972853 (Version 1)
Quarter: 2016Q1

REPORT INFORMATION
  Report Type: Spontaneous
  Country: US (occurrence: US)
  Receive Date: 20160128
  Receipt Date: 20160128
  Transmission Date: 20160526
  Serious: No
  Sender: FDA-Public Use
  Company Number: CHPA2016US001329

PATIENT
  Age: 76 Year
  Sex: Female

DRUGS (1)
  1. VOLTAREN [Suspect]
     Active Substance: DICLOFENAC SODIUM
     Indication: ARTHRALGIA
     Dosage: 2 G, UNK
     Route: 061
     Dates: start: 20151211, end: 201601

REACTIONS (4)
  - Incorrect dose administered [Unknown]
  - Product use issue [Unknown]
  - Parosmia [Not Recovered/Not Resolved]
  - Throat irritation [Not Recovered/Not Resolved]

NARRATIVE: CASE EVENT DATE: 20151211
